FAERS Safety Report 8097070-9 (Version None)
Quarter: 2012Q1

REPORT INFORMATION
  Report Type: 
  Country: None (occurrence: None)
  Receive Date: 20120126
  Receipt Date: 20120116
  Transmission Date: 20120608
  Serious: Yes (Hospitalization)
  Sender: FDA-Public Use
  Company Number: OMPQ-NO-1201L-0116

PATIENT
  Age: 35 Year
  Sex: Male

DRUGS (1)
  1. OMNIPAQUE 70 [Suspect]
     Indication: ARTERIOVENOUS MALFORMATION
     Dosage: NR, SINGLE DOSE, INTRA-ARTERIAL
     Route: 014

REACTIONS (2)
  - CONTRAST MEDIA REACTION [None]
  - ARTERIAL DISORDER [None]
